FAERS Safety Report 5106805-6 (Version None)
Quarter: 2006Q3

REPORT INFORMATION
  Report Type: 
  Country: None (occurrence: None)
  Receive Date: 20060918
  Receipt Date: 20060901
  Transmission Date: 20061208
  Serious: Yes (Death, Hospitalization)
  Sender: FDA-Public Use
  Company Number: US-SANOFI-SYNTHELABO-A03200605584

PATIENT
  Sex: Female

DRUGS (6)
  1. CLOPIDOGREL [Suspect]
     Indication: MYOCARDIAL INFARCTION
     Dosage: UNK
     Route: 048
     Dates: start: 20060801
  2. CLOPIDOGREL [Suspect]
     Indication: ANGIOPLASTY
     Dosage: UNK
     Route: 048
     Dates: start: 20060801
  3. CLOPIDOGREL [Suspect]
     Indication: STENT PLACEMENT
     Dosage: UNK
     Route: 048
     Dates: start: 20060801
  4. PLAVIX [Suspect]
     Indication: MYOCARDIAL INFARCTION
     Dosage: UNK
     Route: 048
     Dates: start: 20060801, end: 20060801
  5. PLAVIX [Suspect]
     Indication: ANGIOPLASTY
     Dosage: UNK
     Route: 048
     Dates: start: 20060801, end: 20060801
  6. PLAVIX [Suspect]
     Indication: STENT PLACEMENT
     Dosage: UNK
     Route: 048
     Dates: start: 20060801, end: 20060801

REACTIONS (3)
  - DRUG INEFFECTIVE [None]
  - MYOCARDIAL INFARCTION [None]
  - PHARMACEUTICAL PRODUCT COMPLAINT [None]
